FAERS Safety Report 18271856 (Version 1)
Quarter: 2020Q3

REPORT INFORMATION
  Report Type: Spontaneous
  Country: US (occurrence: US)
  Receive Date: 20200521
  Receipt Date: 20200521
  Transmission Date: 20201103
  Serious: No
  Sender: FDA-Public Use
  Company Number: None

PATIENT
  Age: 5 Decade
  Sex: Female

DRUGS (2)
  1. AZITHROMYCIN ANHYDROUS. [Suspect]
     Active Substance: AZITHROMYCIN ANHYDROUS
     Indication: COVID-19
  2. IVERMECTIN. [Suspect]
     Active Substance: IVERMECTIN

REACTIONS (5)
  - Disease recurrence [None]
  - Dyspepsia [None]
  - Off label use [None]
  - Pyrexia [None]
  - Headache [None]
